FAERS Safety Report 14870447 (Version 7)
Quarter: 2018Q4

REPORT INFORMATION
  Report Type: Report from Study
  Country: CA (occurrence: CA)
  Receive Date: 20180509
  Receipt Date: 20181029
  Transmission Date: 20190204
  Serious: Yes (Hospitalization, Other)
  Sender: FDA-Public Use
  Company Number: CA-TAKEDA-2018TUS015652

PATIENT
  Age: 36 Year
  Sex: Male

DRUGS (4)
  1. PREDNISONE. [Concomitant]
     Active Substance: PREDNISONE
     Dosage: 10 MG, QD
  2. BUSCOPAN [Concomitant]
     Active Substance: BUTYLSCOPOLAMINE BROMIDE
     Dosage: UNK
  3. MORPHINE [Concomitant]
     Active Substance: MORPHINE
     Dosage: UNK
  4. VEDOLIZUMAB [Suspect]
     Active Substance: VEDOLIZUMAB
     Indication: CROHN^S DISEASE
     Dosage: 300 MG, UNK
     Route: 042
     Dates: start: 20171128

REACTIONS (5)
  - Abdominal pain [Not Recovered/Not Resolved]
  - Crohn^s disease [Unknown]
  - Hospitalisation [Recovered/Resolved]
  - Haemoglobin decreased [Unknown]
  - Central venous catheterisation [Unknown]

NARRATIVE: CASE EVENT DATE: 20180823
